FAERS Safety Report 16956236 (Version 2)
Quarter: 2019Q4

REPORT INFORMATION
  Report Type: Spontaneous
  Country: BR (occurrence: BR)
  Receive Date: 20191024
  Receipt Date: 20191031
  Transmission Date: 20200122
  Serious: Yes (Other)
  Sender: FDA-Public Use
  Company Number: BR-PFIZER INC-2019454303

PATIENT
  Sex: Female

DRUGS (1)
  1. DOSTINEX [Suspect]
     Active Substance: CABERGOLINE
     Indication: PITUITARY TUMOUR
     Dosage: UNK

REACTIONS (3)
  - Neurodegenerative disorder [Unknown]
  - Pituitary tumour [Unknown]
  - Condition aggravated [Unknown]
